FAERS Safety Report 17683511 (Version 4)
Quarter: 2023Q1

REPORT INFORMATION
  Report Type: Spontaneous
  Country: US (occurrence: None)
  Receive Date: 20200420
  Receipt Date: 20230227
  Transmission Date: 20230418
  Serious: Yes (Hospitalization, Other)
  Sender: FDA-Public Use
  Company Number: 2020SE50619

PATIENT
  Age: 16427 Day
  Sex: Female
  Weight: 110.7 kg

DRUGS (87)
  1. PRILOSEC [Suspect]
     Active Substance: OMEPRAZOLE MAGNESIUM
     Indication: Gastrooesophageal reflux disease
     Route: 048
     Dates: start: 200104, end: 201612
  2. PRILOSEC [Suspect]
     Active Substance: OMEPRAZOLE MAGNESIUM
     Indication: Gastrooesophageal reflux disease
     Route: 048
     Dates: start: 2009
  3. PRILOSEC [Suspect]
     Active Substance: OMEPRAZOLE MAGNESIUM
     Indication: Gastrooesophageal reflux disease
     Dosage: GENERIC
     Route: 065
     Dates: start: 2009
  4. PRILOSEC OTC [Suspect]
     Active Substance: OMEPRAZOLE MAGNESIUM
     Indication: Gastrooesophageal reflux disease
     Route: 048
     Dates: start: 200104, end: 201612
  5. PRILOSEC OTC [Suspect]
     Active Substance: OMEPRAZOLE MAGNESIUM
     Indication: Gastrooesophageal reflux disease
     Route: 048
     Dates: start: 2006, end: 2008
  6. PROTONIX [Suspect]
     Active Substance: PANTOPRAZOLE SODIUM
     Indication: Gastrooesophageal reflux disease
     Route: 065
     Dates: start: 200104, end: 201612
  7. PROTONIX [Suspect]
     Active Substance: PANTOPRAZOLE SODIUM
     Indication: Gastrooesophageal reflux disease
     Route: 065
     Dates: start: 2001, end: 2002
  8. FUROSEMIDE [Concomitant]
     Active Substance: FUROSEMIDE
     Indication: Swelling
     Dates: start: 199811, end: 201606
  9. IBUPROFEN [Concomitant]
     Active Substance: IBUPROFEN
     Indication: Pain
     Dates: start: 199907, end: 201306
  10. SULFAMETHOXAZOLE\TRIMETHOPRIM [Concomitant]
     Active Substance: SULFAMETHOXAZOLE\TRIMETHOPRIM
     Indication: Infection
     Dates: start: 201202, end: 201503
  11. SIMVASTATIN [Concomitant]
     Active Substance: SIMVASTATIN
     Indication: Blood cholesterol abnormal
     Dates: start: 201002, end: 201210
  12. AZITHROMYCIN [Concomitant]
     Active Substance: AZITHROMYCIN
     Indication: Infection
     Dates: start: 201011, end: 201201
  13. LEVOFLOXACIN [Concomitant]
     Active Substance: LEVOFLOXACIN
     Indication: Infection
     Dates: start: 201304, end: 201404
  14. CIPROFLOXACIN [Concomitant]
     Active Substance: CIPROFLOXACIN
     Indication: Infection
     Dates: start: 201308
  15. ATORVASTATIN [Concomitant]
     Active Substance: ATORVASTATIN
     Indication: Blood cholesterol abnormal
     Dates: start: 201510, end: 201604
  16. ACETAMINOPHEN\HYDROCODONE BITARTRATE [Concomitant]
     Active Substance: ACETAMINOPHEN\HYDROCODONE BITARTRATE
  17. SINGULAIR [Concomitant]
     Active Substance: MONTELUKAST SODIUM
  18. MEDROXYPROGESTERONE [Concomitant]
     Active Substance: MEDROXYPROGESTERONE
  19. ALPRAZOLAM [Concomitant]
     Active Substance: ALPRAZOLAM
  20. ZAROXOLYN [Concomitant]
     Active Substance: METOLAZONE
  21. PAXIL [Concomitant]
     Active Substance: PAROXETINE HYDROCHLORIDE
  22. LOPERAMIDE [Concomitant]
     Active Substance: LOPERAMIDE
  23. QUININE SULFATE [Concomitant]
     Active Substance: QUININE SULFATE
  24. AMANTADINE [Concomitant]
     Active Substance: AMANTADINE
  25. SPIRONOLACTONE [Concomitant]
     Active Substance: SPIRONOLACTONE
  26. INDOMETHACIN [Concomitant]
     Active Substance: INDOMETHACIN
  27. WELLBUTRIN [Concomitant]
     Active Substance: BUPROPION HYDROCHLORIDE
  28. ALLEGRA [Concomitant]
     Active Substance: FEXOFENADINE HYDROCHLORIDE
  29. MACROBID [Concomitant]
     Active Substance: NITROFURANTOIN\NITROFURANTOIN MONOHYDRATE
  30. ALLOPURINOL [Concomitant]
     Active Substance: ALLOPURINOL
  31. ALBUTEROL [Concomitant]
     Active Substance: ALBUTEROL
  32. FLONASE [Concomitant]
     Active Substance: FLUTICASONE PROPIONATE
  33. AMBIEN [Concomitant]
     Active Substance: ZOLPIDEM TARTRATE
  34. ASPIRIN [Concomitant]
     Active Substance: ASPIRIN
  35. DETROL [Concomitant]
     Active Substance: TOLTERODINE TARTRATE
  36. ROXICODONE [Concomitant]
     Active Substance: OXYCODONE HYDROCHLORIDE
  37. MORPHINE [Concomitant]
     Active Substance: MORPHINE
  38. TEMAZEPAM [Concomitant]
     Active Substance: TEMAZEPAM
  39. SIMETHICONE (DIMETHICONE) [Concomitant]
     Active Substance: DIMETHICONE
  40. CEPHALEXIN [Concomitant]
     Active Substance: CEPHALEXIN
  41. CORTOMYCIN [Concomitant]
     Active Substance: BACITRACIN ZINC\HYDROCORTISONE\NEOMYCIN SULFATE\POLYMYXIN B SULFATE
  42. TOPAMAX [Concomitant]
     Active Substance: TOPIRAMATE
  43. NAPROXEN [Concomitant]
     Active Substance: NAPROXEN
  44. DIFLUCAN [Concomitant]
     Active Substance: FLUCONAZOLE
  45. MECLIZINE [Concomitant]
     Active Substance: MECLIZINE HYDROCHLORIDE
  46. CELEBREX [Concomitant]
     Active Substance: CELECOXIB
  47. LOTENSIN [Concomitant]
     Active Substance: BENAZEPRIL HYDROCHLORIDE
  48. TOBRAMYCIN [Concomitant]
     Active Substance: TOBRAMYCIN
  49. TUSSIONEX PENNKINETIC [Concomitant]
     Active Substance: CHLORPHENIRAMINE\HYDROCODONE
  50. REMERON [Concomitant]
     Active Substance: MIRTAZAPINE
  51. CELEXA [Concomitant]
     Active Substance: CITALOPRAM HYDROBROMIDE
  52. DOCUSATE [Concomitant]
     Active Substance: DOCUSATE
  53. VITAMINS [Concomitant]
     Active Substance: VITAMINS
  54. METRONIDAZOLE [Concomitant]
     Active Substance: METRONIDAZOLE
  55. SENNA [Concomitant]
     Active Substance: SENNA LEAF\SENNOSIDES\SENNOSIDES A AND B
  56. TRAZODONE [Concomitant]
     Active Substance: TRAZODONE HYDROCHLORIDE
  57. ZOLOFT [Concomitant]
     Active Substance: SERTRALINE HYDROCHLORIDE
  58. PRAVACHOL [Concomitant]
     Active Substance: PRAVASTATIN SODIUM
  59. BUDESONIDE [Concomitant]
     Active Substance: BUDESONIDE
  60. MIRAPEX [Concomitant]
     Active Substance: PRAMIPEXOLE DIHYDROCHLORIDE
  61. PROMETHAZINE [Concomitant]
     Active Substance: PROMETHAZINE HYDROCHLORIDE
  62. CLINDAMYCIN [Concomitant]
     Active Substance: CLINDAMYCIN
  63. NIASPAN [Concomitant]
     Active Substance: NIACIN
  64. TRIAMCINOLONE [Concomitant]
     Active Substance: TRIAMCINOLONE
  65. GABAPENTIN [Concomitant]
     Active Substance: GABAPENTIN
  66. GEODON [Concomitant]
     Active Substance: ZIPRASIDONE HYDROCHLORIDE\ZIPRASIDONE MESYLATE
  67. FOSINOPRIL [Concomitant]
     Active Substance: FOSINOPRIL
  68. MELATONIN [Concomitant]
     Active Substance: MELATONIN
  69. CLOTRIMAZOLE [Concomitant]
     Active Substance: CLOTRIMAZOLE
  70. CHANTIX [Concomitant]
     Active Substance: VARENICLINE TARTRATE
  71. LORAZEPAM [Concomitant]
     Active Substance: LORAZEPAM
  72. AMITRIPTYLINE [Concomitant]
     Active Substance: AMITRIPTYLINE
  73. LORATADINE [Concomitant]
     Active Substance: LORATADINE
  74. ZINC OXIDE [Concomitant]
     Active Substance: ZINC OXIDE
  75. SINEMET [Concomitant]
     Active Substance: CARBIDOPA\LEVODOPA
  76. VALIUM [Concomitant]
     Active Substance: DIAZEPAM
  77. LINZESS [Concomitant]
     Active Substance: LINACLOTIDE
  78. REGLAN [Concomitant]
     Active Substance: METOCLOPRAMIDE HYDROCHLORIDE
  79. RENAGEL [Concomitant]
     Active Substance: SEVELAMER HYDROCHLORIDE
  80. VIIBRYD [Concomitant]
     Active Substance: VILAZODONE HYDROCHLORIDE
  81. DULCOLAX NOS [Concomitant]
     Active Substance: BISACODYL OR DOCUSATE SODIUM
  82. RELISTOR [Concomitant]
     Active Substance: METHYLNALTREXONE BROMIDE
  83. AZACTAM [Concomitant]
     Active Substance: AZTREONAM
  84. MYCOSTATIN [Concomitant]
     Active Substance: NYSTATIN
  85. VANCOCIN [Concomitant]
     Active Substance: VANCOMYCIN HYDROCHLORIDE
  86. ERYTHROMYCIN [Concomitant]
     Active Substance: ERYTHROMYCIN
  87. ABILIFY [Concomitant]
     Active Substance: ARIPIPRAZOLE

REACTIONS (8)
  - Acute kidney injury [Not Recovered/Not Resolved]
  - Chronic kidney disease [Not Recovered/Not Resolved]
  - End stage renal disease [Not Recovered/Not Resolved]
  - Renal failure [Unknown]
  - Ventricular extrasystoles [Unknown]
  - Metabolic acidosis [Unknown]
  - Respiratory acidosis [Unknown]
  - Dyspnoea [Unknown]

NARRATIVE: CASE EVENT DATE: 20080909
